FAERS Safety Report 15637617 (Version 1)
Quarter: 2018Q4

REPORT INFORMATION
  Report Type: Spontaneous
  Country: US (occurrence: US)
  Receive Date: 20181120
  Receipt Date: 20181120
  Transmission Date: 20190205
  Serious: No
  Sender: FDA-Public Use
  Company Number: US-SUNOVION-2018SUN004560

PATIENT

DRUGS (1)
  1. LATUDA [Suspect]
     Active Substance: LURASIDONE HYDROCHLORIDE
     Indication: MAJOR DEPRESSION
     Dosage: UNK
     Route: 048

REACTIONS (6)
  - Thyroid disorder [Unknown]
  - Blood glucose increased [Unknown]
  - Off label use [Unknown]
  - Insulin resistance [Unknown]
  - Polycystic ovaries [Unknown]
  - Tremor [Unknown]
